FAERS Safety Report 10885732 (Version 1)
Quarter: 2015Q1

REPORT INFORMATION
  Report Type: Report from Study
  Country: US (occurrence: US)
  Receive Date: 20150304
  Receipt Date: 20150304
  Transmission Date: 20150721
  Serious: Yes (Other)
  Sender: FDA-Public Use
  Company Number: PHEH2015US004034

PATIENT
  Sex: Female

DRUGS (1)
  1. AFINITOR [Suspect]
     Active Substance: EVEROLIMUS
     Indication: PANCREATIC CARCINOMA
     Dosage: 10 MG, QD
     Route: 048

REACTIONS (8)
  - Pigmentation disorder [Unknown]
  - Hypoaesthesia [Unknown]
  - Hepatic mass [Unknown]
  - Spinal column stenosis [Unknown]
  - Pain in extremity [Unknown]
  - Dizziness [Unknown]
  - Back pain [Not Recovered/Not Resolved]
  - Fatigue [Unknown]
